FAERS Safety Report 15352391 (Version 3)
Quarter: 2018Q4

REPORT INFORMATION
  Report Type: Spontaneous
  Country: None (occurrence: US)
  Receive Date: 20180905
  Receipt Date: 20181203
  Transmission Date: 20190204
  Serious: No
  Sender: FDA-Public Use
  Company Number: US-VIFOR (INTERNATIONAL) INC.-VIT-2018-08663

PATIENT
  Age: 89 Year
  Sex: Male

DRUGS (11)
  1. VELTASSA [Suspect]
     Active Substance: PATIROMER
     Indication: HYPERKALAEMIA
     Route: 048
     Dates: start: 20180815, end: 201808
  2. VITAMIN D3 [Concomitant]
     Active Substance: CHOLECALCIFEROL
  3. FUROSEMIDE. [Concomitant]
     Active Substance: FUROSEMIDE
  4. LACTULOSE. [Concomitant]
     Active Substance: LACTULOSE
  5. ASPIRIN. [Concomitant]
     Active Substance: ASPIRIN
  6. HUMALOG [Concomitant]
     Active Substance: INSULIN LISPRO
  7. FERROUS SULFATE. [Concomitant]
     Active Substance: FERROUS SULFATE
  8. RENA-VITE [Concomitant]
     Active Substance: ASCORBIC ACID\BIOTIN\CALCIUM PANTOTHENATE\CYANOCOBALAMIN\FOLIC ACID\NIACINAMIDE\PYRIDOXINE HYDROCHLORIDE\RIBOFLAVIN\THIAMINE MONONITRATE
  9. HYDRALAZINE HCL [Concomitant]
     Active Substance: HYDRALAZINE HYDROCHLORIDE
  10. NITROSTAT [Concomitant]
     Active Substance: NITROGLYCERIN
  11. COLACE [Concomitant]
     Active Substance: DOCUSATE SODIUM

REACTIONS (5)
  - Pain in extremity [Unknown]
  - Abdominal pain upper [Unknown]
  - Blood phosphorus decreased [Unknown]
  - Asthenia [Unknown]
  - Headache [Unknown]

NARRATIVE: CASE EVENT DATE: 2018
